FAERS Safety Report 16982705 (Version 1)
Quarter: 2019Q4

REPORT INFORMATION
  Report Type: Spontaneous
  Country: SK (occurrence: SK)
  Receive Date: 20191101
  Receipt Date: 20191101
  Transmission Date: 20200122
  Serious: Yes (Death, Other)
  Sender: FDA-Public Use
  Company Number: SK-ROCHE-2450621

PATIENT
  Age: 74 Year
  Sex: Male

DRUGS (9)
  1. PROTEVASC [Concomitant]
     Active Substance: TRIMETAZIDINE DIHYDROCHLORIDE
     Dosage: ONE TABLET TWICE A DAY.
     Route: 048
  2. VASOCARDIN [Concomitant]
     Active Substance: METOPROLOL
     Dosage: ONE TABLET TWICE A DAY.
     Route: 065
  3. ESBRIET [Suspect]
     Active Substance: PIRFENIDONE
     Indication: IDIOPATHIC PULMONARY FIBROSIS
     Dosage: THREE CAPSULES THREE TIMES A DAY.
     Route: 048
     Dates: start: 20170628, end: 20180902
  4. TORVACARD [Concomitant]
     Active Substance: ATORVASTATIN CALCIUM
     Dosage: ONE TABLET AT NIGHT.
     Route: 065
  5. LAGOSA [Concomitant]
     Active Substance: DIETARY SUPPLEMENT\HERBALS\MILK THISTLE
     Dosage: ONE TABLET TWO TIMES A DAY.
     Route: 065
  6. ESSENTIALE FORTE N [Concomitant]
     Dosage: TWO CAPSULES THREE TIMES A DAY.
     Route: 065
  7. ESBRIET [Suspect]
     Active Substance: PIRFENIDONE
     Dosage: TWO TABLETS THREE TIMES A DAY.
     Route: 065
     Dates: start: 201707, end: 20180902
  8. FURON [FUROSEMIDE] [Concomitant]
     Route: 042
     Dates: start: 20190206
  9. FRAXIPARINE [Concomitant]
     Active Substance: NADROPARIN CALCIUM
     Dosage: EVERY 12 HOURS.
     Route: 058
     Dates: start: 20190131

REACTIONS (2)
  - Cardiopulmonary failure [Fatal]
  - Pulmonary embolism [Unknown]

NARRATIVE: CASE EVENT DATE: 201901
